FAERS Safety Report 20415563 (Version 1)
Quarter: 2022Q1

REPORT INFORMATION
  Report Type: Spontaneous
  Country: US (occurrence: US)
  Receive Date: 20220202
  Receipt Date: 20220202
  Transmission Date: 20220423
  Serious: Yes (Hospitalization, Other)
  Sender: FDA-Public Use
  Company Number: US-ADVANZ PHARMA-202201000416

PATIENT

DRUGS (2)
  1. HYDROXYCHLOROQUINE [Suspect]
     Active Substance: HYDROXYCHLOROQUINE
     Indication: Adenocarcinoma
     Dosage: 200 MG, QD (PLAQUENIL) ON DAYS 4-42
     Route: 048
     Dates: start: 20100503, end: 20100524
  2. SUNITINIB MALATE [Suspect]
     Active Substance: SUNITINIB MALATE
     Indication: Adenocarcinoma
     Dosage: 50 MG, QD  1X/DAY, CYCLE 1 ON DAYS 1-28
     Route: 048
     Dates: start: 20100503, end: 20100524

REACTIONS (10)
  - Dehydration [Not Recovered/Not Resolved]
  - Oral dysaesthesia [Not Recovered/Not Resolved]
  - Abdominal distension [Recovered/Resolved]
  - Glossodynia [Not Recovered/Not Resolved]
  - Constipation [Not Recovered/Not Resolved]
  - Impaired gastric emptying [Not Recovered/Not Resolved]
  - Hypocalcaemia [Recovered/Resolved]
  - Fatigue [Not Recovered/Not Resolved]
  - Diarrhoea [Not Recovered/Not Resolved]
  - Weight decreased [Unknown]

NARRATIVE: CASE EVENT DATE: 20100506
